FAERS Safety Report 9610592 (Version 2)
Quarter: 2013Q4

REPORT INFORMATION
  Report Type: Spontaneous
  Country: US (occurrence: US)
  Receive Date: 20131009
  Receipt Date: 20131009
  Transmission Date: 20140711
  Serious: Yes (Other)
  Sender: FDA-Public Use
  Company Number: US-NAPPMUNDI-USA-2012-0096834

PATIENT
  Age: 45 Year
  Sex: Male

DRUGS (4)
  1. BUTRANS [Suspect]
     Indication: BACK PAIN
     Dosage: 5 MCG/HR, UNK
     Route: 062
     Dates: start: 2012, end: 20121207
  2. ZOCOR [Concomitant]
     Indication: ATRIAL FLUTTER
  3. LISINOPRIL [Concomitant]
     Indication: ATRIAL FLUTTER
  4. DILTIAZEM [Concomitant]
     Indication: ATRIAL FLUTTER

REACTIONS (10)
  - Overdose [Unknown]
  - Drug withdrawal syndrome [Unknown]
  - Hyporesponsive to stimuli [Unknown]
  - Unevaluable event [Unknown]
  - Dyspnoea [Recovered/Resolved]
  - Aphasia [Recovered/Resolved]
  - Disorientation [Recovered/Resolved]
  - Fear [Recovered/Resolved]
  - Gait disturbance [Recovered/Resolved]
  - Product quality issue [Unknown]
